FAERS Safety Report 24009787 (Version 8)
Quarter: 2025Q1

REPORT INFORMATION
  Report Type: Spontaneous
  Country: CA (occurrence: CA)
  Receive Date: 20240625
  Receipt Date: 20250319
  Transmission Date: 20250408
  Serious: Yes (Other)
  Sender: PFIZER
  Company Number: CA-PFIZER INC-202400197755

PATIENT
  Age: 66 Year
  Sex: Female

DRUGS (2)
  1. ABRILADA [Suspect]
     Active Substance: ADALIMUMAB-AFZB
     Indication: Crohn^s disease
     Route: 058
     Dates: start: 20240524, end: 2024
  2. ABRILADA [Suspect]
     Active Substance: ADALIMUMAB-AFZB
     Dosage: 40 MG, WEEKLY
     Route: 058
     Dates: start: 2024

REACTIONS (5)
  - Gastrointestinal obstruction [Unknown]
  - Cataract [Unknown]
  - Vomiting [Unknown]
  - Enteritis [Unknown]
  - Off label use [Unknown]
